FAERS Safety Report 17100077 (Version 1)
Quarter: 2019Q4

REPORT INFORMATION
  Report Type: Other
  Country: FR (occurrence: FR)
  Receive Date: 20191202
  Receipt Date: 20191202
  Transmission Date: 20200122
  Serious: Yes (Hospitalization, Other)
  Sender: FDA-Public Use
  Company Number: FR-VALIDUS PHARMACEUTICALS LLC-FR-2019VAL000809

PATIENT

DRUGS (4)
  1. LANSOPRAZOLE. [Concomitant]
     Active Substance: LANSOPRAZOLE
     Indication: WRONG PRODUCT ADMINISTERED
     Dosage: UNK
     Dates: start: 20191025, end: 20191025
  2. BISOPROLOL HEMIFUMARATE [Suspect]
     Active Substance: BISOPROLOL FUMARATE
     Indication: WRONG PRODUCT ADMINISTERED
     Dosage: 5 MG, TOTAL
     Route: 048
     Dates: start: 20191025, end: 20191025
  3. LEVOTHYROX [Concomitant]
     Active Substance: LEVOTHYROXINE
     Indication: WRONG PRODUCT ADMINISTERED
     Dosage: UNK
     Dates: start: 20191025, end: 20191025
  4. FUROSEMIDE. [Suspect]
     Active Substance: FUROSEMIDE
     Indication: WRONG PRODUCT ADMINISTERED
     Dosage: 40 MG, TOTAL
     Route: 048
     Dates: start: 20191025, end: 20191025

REACTIONS (3)
  - Wrong drug [Unknown]
  - Bradycardia [Recovered/Resolved]
  - Atrioventricular block [Recovered/Resolved]

NARRATIVE: CASE EVENT DATE: 20191025
